FAERS Safety Report 25652720 (Version 2)
Quarter: 2025Q3

REPORT INFORMATION
  Report Type: Report from Study
  Country: US (occurrence: US)
  Receive Date: 20250807
  Receipt Date: 20250910
  Transmission Date: 20251021
  Serious: Yes (Hospitalization, Other)
  Sender: SUNOVION
  Company Number: US-SUMITOMO PHARMA SWITZERLAND GMBH-2024SPA000618

PATIENT
  Age: 82 Year
  Sex: Male

DRUGS (5)
  1. ORGOVYX [Suspect]
     Active Substance: RELUGOLIX
     Indication: Prostate cancer
     Dosage: 360 MG, SINGLE
     Route: 048
     Dates: start: 20220815, end: 20220815
  2. ORGOVYX [Suspect]
     Active Substance: RELUGOLIX
     Dosage: 240 MG, QD
     Route: 048
     Dates: start: 20220816
  3. CODEINE [Suspect]
     Active Substance: CODEINE
  4. MORPHINE [Suspect]
     Active Substance: MORPHINE
  5. GINKGO BILOBA LEAF EXTRACT [Suspect]
     Active Substance: GINKGO BILOBA LEAF EXTRACT

REACTIONS (13)
  - Diplopia [Unknown]
  - Malaise [Unknown]
  - Surgery [Unknown]
  - Eye operation [Unknown]
  - Balance disorder [Unknown]
  - Fat tissue increased [Unknown]
  - Gait disturbance [Unknown]
  - Nasopharyngitis [Unknown]
  - Muscle atrophy [Unknown]
  - Nausea [Unknown]
  - Arthritis [Unknown]
  - Gynaecomastia [Unknown]
  - Incorrect dose administered [Unknown]
